FAERS Safety Report 4701108-3 (Version None)
Quarter: 2005Q2

REPORT INFORMATION
  Report Type: 
  Country: None (occurrence: None)
  Receive Date: 20050628
  Receipt Date: 20050620
  Transmission Date: 20051028
  Serious: Yes (Hospitalization)
  Sender: FDA-Public Use
  Company Number: JP-BRISTOL-MYERS SQUIBB COMPANY-13010293

PATIENT
  Age: 62 Year
  Sex: Male

DRUGS (1)
  1. BRIPLATIN [Suspect]
     Indication: NASOPHARYNGEAL CANCER
     Route: 041

REACTIONS (2)
  - EATING DISORDER [None]
  - PHARYNGITIS [None]
